FAERS Safety Report 26074661 (Version 1)
Quarter: 2025Q4

REPORT INFORMATION
  Report Type: Spontaneous
  Country: US (occurrence: None)
  Receive Date: 20251120
  Receipt Date: 20251120
  Transmission Date: 20260117
  Serious: Yes (Hospitalization, Other)
  Sender: FDA-CTU
  Company Number: None

PATIENT
  Age: 80 Year
  Sex: Female
  Weight: 80.74 kg

DRUGS (3)
  1. ZEPBOUND [Suspect]
     Active Substance: TIRZEPATIDE
     Indication: Diabetes mellitus
     Dosage: FREQUENCY : WEEKLY;?
     Route: 042
     Dates: start: 20250405, end: 20250906
  2. ZEPBOUND [Suspect]
     Active Substance: TIRZEPATIDE
     Indication: Sleep apnoea syndrome
  3. ZEPBOUND [Suspect]
     Active Substance: TIRZEPATIDE
     Indication: Weight decreased

REACTIONS (7)
  - Decreased appetite [None]
  - Asthenia [None]
  - Nausea [None]
  - Vomiting [None]
  - Therapy cessation [None]
  - Abdominal pain [None]
  - Small intestinal resection [None]

NARRATIVE: CASE EVENT DATE: 20250905
